FAERS Safety Report 8462536-6 (Version None)
Quarter: 2012Q2

REPORT INFORMATION
  Report Type: 
  Country: None (occurrence: None)
  Receive Date: 20120625
  Receipt Date: 20120618
  Transmission Date: 20120825
  Serious: Yes (Hospitalization)
  Sender: FDA-Public Use
  Company Number: US-B.I. PHARMACEUTICALS,INC./RIDGEFIELD-2012-BP-13922BP

PATIENT
  Sex: Female

DRUGS (5)
  1. MELOXICAM [Concomitant]
     Indication: BONE PAIN
  2. PRIMIDONE [Concomitant]
     Indication: CONVULSION
     Route: 048
  3. PREMARIN [Concomitant]
     Indication: MENOPAUSE
     Dates: start: 19880101
  4. SPIRIVA [Suspect]
     Indication: CHRONIC OBSTRUCTIVE PULMONARY DISEASE
     Dosage: 18 MCG
     Route: 055
     Dates: start: 20090101
  5. LISINOPRIL [Concomitant]
     Indication: HYPERTENSION

REACTIONS (1)
  - PNEUMONIA [None]
